FAERS Safety Report 7798053-6 (Version None)
Quarter: 2011Q4

REPORT INFORMATION
  Report Type: 
  Country: None (occurrence: None)
  Receive Date: 20111005
  Receipt Date: 20110929
  Transmission Date: 20120403
  Serious: Yes (Other)
  Sender: FDA-Public Use
  Company Number: CHPA2011US13327

PATIENT
  Sex: Male

DRUGS (1)
  1. EXCEDRIN (MIGRAINE) [Suspect]
     Indication: EUPHORIC MOOD
     Dosage: UNK, EVERYDAY
     Route: 048

REACTIONS (2)
  - INTENTIONAL DRUG MISUSE [None]
  - OFF LABEL USE [None]
